FAERS Safety Report 17483154 (Version 2)
Quarter: 2020Q1

REPORT INFORMATION
  Report Type: Spontaneous
  Country: US (occurrence: US)
  Receive Date: 20200302
  Receipt Date: 20200310
  Transmission Date: 20200409
  Serious: No
  Sender: FDA-Public Use
  Company Number: US-PFIZER INC-2020091480

PATIENT
  Age: 35 Year
  Sex: Female

DRUGS (1)
  1. CLINDAMYCIN PHOSPHATE. [Suspect]
     Active Substance: CLINDAMYCIN PHOSPHATE
     Indication: ACNE
     Dosage: UNK, (UP TO THREE TIMES A DAY, APPLIED TOPICALLY TO FACE )
     Route: 061

REACTIONS (4)
  - Product odour abnormal [Unknown]
  - Drug ineffective [Unknown]
  - Poor quality product administered [Unknown]
  - Off label use [Unknown]
